FAERS Safety Report 8276193-5 (Version None)
Quarter: 2012Q2

REPORT INFORMATION
  Report Type: 
  Country: None (occurrence: None)
  Receive Date: 20120409
  Receipt Date: 20120327
  Transmission Date: 20120825
  Serious: Yes (Other)
  Sender: FDA-Public Use
  Company Number: 2012JP006261

PATIENT
  Age: 59 Year
  Sex: Male

DRUGS (7)
  1. DOXORUBICIN HCL [Suspect]
     Indication: LYMPHOMA
     Dosage: INTRAVENOUS
     Route: 042
     Dates: start: 20120209
  2. RITUXAN [Concomitant]
  3. EDDOXAN (CYCLOPHOSPHAMDIE MONOHYDRATE) [Concomitant]
  4. PREDNISONE TAB [Suspect]
     Indication: LYMPHOMA
     Dates: start: 20120209
  5. ALOXI [Suspect]
     Indication: PROPHYLAXIS OF NAUSEA AND VOMITING
     Dosage: INTRAVENOUS
     Route: 042
     Dates: start: 20120209
  6. BENDAMUSTINE HYDROCHLORIDE (BENDAMUSTINE HYDROCHLORIDE) [Suspect]
     Indication: LYMPHOMA
  7. ONCOVIN [Suspect]
     Indication: LYMPHOMA
     Dosage: INTRAVENOUS
     Route: 042
     Dates: start: 20120209

REACTIONS (1)
  - SUBILEUS [None]
